FAERS Safety Report 5588355-6 (Version None)
Quarter: 2008Q1

REPORT INFORMATION
  Report Type: 
  Country: None (occurrence: None)
  Receive Date: 20080111
  Receipt Date: 20071003
  Transmission Date: 20080703
  Serious: No
  Sender: FDA-Public Use
  Company Number: A0685956A

PATIENT
  Age: 48 Year
  Sex: Female

DRUGS (8)
  1. TYKERB [Suspect]
     Indication: BREAST CANCER
     Dosage: 1250MG PER DAY
     Route: 048
     Dates: start: 20070927, end: 20071001
  2. CARDURA [Concomitant]
  3. XELODA [Concomitant]
  4. OMEGA-3 [Concomitant]
  5. FLOR ESSENCE [Concomitant]
  6. MULTIMINERAL [Concomitant]
  7. CHROMIUM [Concomitant]
  8. UNKNOWN VITAMINS [Concomitant]

REACTIONS (1)
  - PALPITATIONS [None]
